FAERS Safety Report 8267561-6 (Version None)
Quarter: 2012Q2

REPORT INFORMATION
  Report Type: 
  Country: None (occurrence: None)
  Receive Date: 20120404
  Receipt Date: 20120327
  Transmission Date: 20120825
  Serious: Yes (Other)
  Sender: FDA-Public Use
  Company Number: AUR-APL-2012-01584

PATIENT
  Age: 19 Year
  Sex: Female
  Weight: 60 kg

DRUGS (3)
  1. ALBUTEROL SULFATE [Concomitant]
  2. SUMATRIPTAN SUCCINATE [Suspect]
     Indication: MIGRAINE
     Dosage: 50 MG, ORAL
     Route: 048
     Dates: start: 20120228, end: 20120228
  3. CLENIL MODULTE (BECLOMETASONE DIPROPIONATE) [Concomitant]

REACTIONS (1)
  - DRUG HYPERSENSITIVITY [None]
